FAERS Safety Report 17095055 (Version 3)
Quarter: 2020Q1

REPORT INFORMATION
  Report Type: Report from Study
  Country: US (occurrence: US)
  Receive Date: 20191130
  Receipt Date: 20200304
  Transmission Date: 20200409
  Serious: Yes (Hospitalization)
  Sender: FDA-Public Use
  Company Number: US-ROCHE-2480519

PATIENT
  Age: 48 Year
  Sex: Female
  Weight: 64.92 kg

DRUGS (9)
  1. ACETAMINOPHEN. [Concomitant]
     Active Substance: ACETAMINOPHEN
     Indication: PAIN
     Dosage: ONGOING YES
     Route: 048
  2. GABAPENTIN. [Concomitant]
     Active Substance: GABAPENTIN
     Indication: PAIN
  3. OCREVUS [Suspect]
     Active Substance: OCRELIZUMAB
     Indication: RELAPSING-REMITTING MULTIPLE SCLEROSIS
     Dosage: DATE OF TREATMENT: 19/MAR/2019, 20/SEP/2019?ONGOING YES, EVERY 6 MONTHS
     Route: 042
     Dates: start: 20181003
  4. GABAPENTIN. [Concomitant]
     Active Substance: GABAPENTIN
     Indication: MUSCLE SPASMS
     Dosage: 2 TABLETS AT BEDTIME?ONGOING YES
     Route: 048
  5. RITALIN [Concomitant]
     Active Substance: METHYLPHENIDATE HYDROCHLORIDE
     Dosage: ONGOING YES,
     Route: 048
     Dates: start: 2012
  6. ACETAMINOPHEN. [Concomitant]
     Active Substance: ACETAMINOPHEN
     Indication: PAIN
     Dosage: ONGOING YES
     Route: 048
  7. OCREVUS [Suspect]
     Active Substance: OCRELIZUMAB
     Indication: PROGRESSIVE MULTIPLE SCLEROSIS
     Dosage: ONGOING: YES?DATE OF TREATMENT: 08/FEB/2018
     Route: 042
     Dates: start: 20170808
  8. BACLOFEN. [Concomitant]
     Active Substance: BACLOFEN
     Indication: MUSCLE SPASTICITY
     Dosage: ONGOING: YES
     Route: 048
     Dates: start: 2009
  9. VITAMIN D3 [Concomitant]
     Active Substance: CHOLECALCIFEROL
     Dosage: ONGOING YES, 2 TABS DAILY
     Route: 048

REACTIONS (5)
  - Paralysis [Unknown]
  - Strabismus [Unknown]
  - Urinary tract infection bacterial [Recovered/Resolved]
  - Hypotonia [Unknown]
  - Depression [Unknown]

NARRATIVE: CASE EVENT DATE: 2019
